FAERS Safety Report 12990060 (Version 11)
Quarter: 2018Q1

REPORT INFORMATION
  Report Type: Spontaneous
  Country: US (occurrence: US)
  Receive Date: 20161201
  Receipt Date: 20180102
  Transmission Date: 20180508
  Serious: Yes (Hospitalization, Congenital Anomaly, Other)
  Sender: FDA-Public Use
  Company Number: PHEH2016US031110

PATIENT
  Sex: Male

DRUGS (2)
  1. ZOFRAN [Suspect]
     Active Substance: ONDANSETRON HYDROCHLORIDE
     Indication: FOETAL EXPOSURE DURING PREGNANCY
     Dosage: MOTHER DOSE: 08 MG, PRN
     Route: 064
  2. ZOFRAN [Suspect]
     Active Substance: ONDANSETRON HYDROCHLORIDE
     Indication: FOETAL EXPOSURE DURING PREGNANCY
     Route: 064

REACTIONS (51)
  - Asthma [Unknown]
  - Pharyngitis [Unknown]
  - Abdominal pain [Unknown]
  - Muscle spasms [Unknown]
  - Ventricular septal defect [Unknown]
  - Transposition of the great vessels [Unknown]
  - Aortic aneurysm [Unknown]
  - Gastroenteritis [Unknown]
  - Pyrexia [Unknown]
  - Chest pain [Unknown]
  - Inferior vena cava syndrome [Unknown]
  - Pulmonary congestion [Unknown]
  - Bradycardia [Unknown]
  - Cardiac murmur [Unknown]
  - Weight decreased [Unknown]
  - Univentricular heart [Unknown]
  - Intestinal malrotation [Unknown]
  - Cyanosis neonatal [Unknown]
  - Aortic valve incompetence [Unknown]
  - Tricuspid valve incompetence [Unknown]
  - Hyperbilirubinaemia [Recovering/Resolving]
  - Dehydration [Unknown]
  - Depression [Unknown]
  - Obsessive-compulsive disorder [Unknown]
  - Otitis media acute [Unknown]
  - Fatigue [Unknown]
  - Anomalous pulmonary venous connection [Unknown]
  - Patent ductus arteriosus [Unknown]
  - Attention deficit/hyperactivity disorder [Unknown]
  - Lactose intolerance [Unknown]
  - Jaundice [Unknown]
  - Cardiomegaly [Unknown]
  - Pulmonary artery atresia [Unknown]
  - Foetal exposure during pregnancy [Unknown]
  - Right ventricular hypertrophy [Unknown]
  - Pneumonia [Unknown]
  - Rhinitis allergic [Unknown]
  - Scar [Unknown]
  - Heart disease congenital [Unknown]
  - Deafness [Unknown]
  - Atelectasis [Unknown]
  - Injury [Unknown]
  - Viral infection [Unknown]
  - Viral pharyngitis [Unknown]
  - Upper respiratory tract infection [Unknown]
  - Head injury [Unknown]
  - Respiratory syncytial virus bronchiolitis [Unknown]
  - Pulmonary artery stenosis [Unknown]
  - Hodgkin^s disease [Unknown]
  - Pharyngitis streptococcal [Unknown]
  - Decreased appetite [Not Recovered/Not Resolved]
